FAERS Safety Report 18820549 (Version 2)
Quarter: 2021Q1

REPORT INFORMATION
  Report Type: Report from Study
  Country: CO (occurrence: CO)
  Receive Date: 20210202
  Receipt Date: 20210310
  Transmission Date: 20210419
  Serious: Yes (Hospitalization)
  Sender: FDA-Public Use
  Company Number: NVSC2021CO022138

PATIENT
  Sex: Female

DRUGS (1)
  1. REVOLADE [Suspect]
     Active Substance: ELTROMBOPAG OLAMINE
     Indication: IMMUNE THROMBOCYTOPENIA
     Dosage: 50 MG, QD
     Route: 048

REACTIONS (5)
  - Cholelithiasis [Unknown]
  - Pain [Unknown]
  - Intestinal obstruction [Unknown]
  - Pancreatitis [Unknown]
  - Abdominal discomfort [Unknown]
